FAERS Safety Report 16397505 (Version 1)
Quarter: 2019Q2

REPORT INFORMATION
  Report Type: Report from Study
  Country: IT (occurrence: IT)
  Receive Date: 20190606
  Receipt Date: 20190606
  Transmission Date: 20190711
  Serious: Yes (Hospitalization, Other)
  Sender: FDA-Public Use
  Company Number: IT-IPSEN BIOPHARMACEUTICALS, INC.-2019-08873

PATIENT
  Age: 5 Year
  Sex: Female
  Weight: 12.6 kg

DRUGS (2)
  1. INCRELEX [Suspect]
     Active Substance: MECASERMIN
     Route: 058
     Dates: start: 20180211
  2. INCRELEX [Suspect]
     Active Substance: MECASERMIN
     Indication: PRIMARY INSULIN LIKE GROWTH FACTOR-1 DEFICIENCY
     Route: 058
     Dates: start: 20170330, end: 20180207

REACTIONS (9)
  - Respiratory tract infection [Recovered/Resolved]
  - Insulin-like growth factor increased [Recovered/Resolved]
  - Urticaria [Recovered/Resolved]
  - Sepsis [Recovered/Resolved]
  - Asthma [Recovered/Resolved]
  - Blood alkaline phosphatase decreased [Not Recovered/Not Resolved]
  - Eosinophil count increased [Recovered/Resolved]
  - Blood thyroid stimulating hormone decreased [Recovered/Resolved]
  - Angioedema [Unknown]

NARRATIVE: CASE EVENT DATE: 20170626
